FAERS Safety Report 20492158 (Version 3)
Quarter: 2022Q1

REPORT INFORMATION
  Report Type: Spontaneous
  Country: ES (occurrence: ES)
  Receive Date: 20220218
  Receipt Date: 20220222
  Transmission Date: 20220423
  Serious: Yes (Hospitalization, Other)
  Sender: FDA-Public Use
  Company Number: ES-009507513-2202ESP005429

PATIENT
  Age: 60 Year
  Sex: Male

DRUGS (5)
  1. KEYTRUDA [Suspect]
     Active Substance: PEMBROLIZUMAB
     Indication: Hypopharyngeal cancer
     Dosage: UNK, CYCLICAL
     Dates: start: 202104, end: 20211222
  2. KEYTRUDA [Suspect]
     Active Substance: PEMBROLIZUMAB
     Dosage: UNK, Q3W
     Dates: start: 20211222
  3. APREPITANT [Suspect]
     Active Substance: APREPITANT
     Indication: Prophylaxis of nausea and vomiting
     Dosage: 3 DOSES
     Route: 048
     Dates: start: 20210615
  4. CISPLATIN [Suspect]
     Active Substance: CISPLATIN
     Indication: Hypopharyngeal cancer
     Dosage: UNK UNK, CYCLICAL
     Dates: start: 202104, end: 20211018
  5. FLUOROURACIL [Suspect]
     Active Substance: FLUOROURACIL
     Indication: Hypopharyngeal cancer
     Dosage: UNK, CYCLICAL
     Dates: start: 202104, end: 20211018

REACTIONS (16)
  - Dysphagia [Unknown]
  - Choking [Unknown]
  - Procedural haemorrhage [Recovered/Resolved]
  - Malnutrition [Unknown]
  - Hypokalaemia [Unknown]
  - Sarcopenia [Unknown]
  - Platelet count abnormal [Unknown]
  - White blood cell count abnormal [Unknown]
  - Neutrophil count abnormal [Unknown]
  - Blood thyroid stimulating hormone abnormal [Unknown]
  - Productive cough [Unknown]
  - Lymphopenia [Unknown]
  - Weight decreased [Recovering/Resolving]
  - Asthenia [Recovered/Resolved]
  - Asthenia [Recovered/Resolved]
  - Product use issue [Unknown]

NARRATIVE: CASE EVENT DATE: 20210101
